FAERS Safety Report 4726104-1 (Version None)
Quarter: 2005Q3

REPORT INFORMATION
  Report Type: 
  Country: None (occurrence: None)
  Receive Date: 20050726
  Receipt Date: 20050726
  Transmission Date: 20060218
  Serious: No
  Sender: FDA-Public Use
  Company Number: None

PATIENT
  Age: 55 Year
  Sex: Female
  Weight: 146 kg

DRUGS (7)
  1. VANCOMYCIN [Suspect]
     Indication: ENDOCARDITIS
     Dosage: 800MG QD INTRAVENOUS
     Route: 042
     Dates: start: 20050707, end: 20050723
  2. GENTAMICIN 63323001020 [Suspect]
     Indication: ENDOCARDITIS
     Dosage: 60MG BID INTRAVENOUS
     Route: 042
     Dates: start: 20050707, end: 20050723
  3. XALATAN [Concomitant]
  4. ATENOLOL [Concomitant]
  5. HYTIN [Concomitant]
  6. LISINOPRIL [Concomitant]
  7. DDYAZIDE [Concomitant]

REACTIONS (1)
  - BLOOD CREATININE INCREASED [None]
